FAERS Safety Report 11247826 (Version 1)
Quarter: 2015Q3

REPORT INFORMATION
  Report Type: Spontaneous
  Country: US (occurrence: US)
  Receive Date: 20150708
  Receipt Date: 20150708
  Transmission Date: 20151125
  Serious: Yes (Death)
  Sender: FDA-Public Use
  Company Number: US-ACTELION-A-US2015-120482

PATIENT
  Age: 49 Year
  Sex: Female

DRUGS (1)
  1. VELETRI [Suspect]
     Active Substance: EPOPROSTENOL
     Indication: PULMONARY ARTERIAL HYPERTENSION
     Dosage: UNK, 1.5 MG VIAL X2
     Route: 042
     Dates: start: 20150306

REACTIONS (1)
  - Death [Fatal]

NARRATIVE: CASE EVENT DATE: 20150628
